FAERS Safety Report 19564861 (Version 1)
Quarter: 2021Q3

REPORT INFORMATION
  Report Type: Spontaneous
  Country: PT (occurrence: PT)
  Receive Date: 20210714
  Receipt Date: 20210714
  Transmission Date: 20211014
  Serious: Yes (Other)
  Sender: FDA-Public Use
  Company Number: PT-EISAI MEDICAL RESEARCH-EC-2021-095834

PATIENT
  Age: 61 Year
  Sex: Female

DRUGS (1)
  1. LENVATINIB [Suspect]
     Active Substance: LENVATINIB
     Indication: THYROID CANCER METASTATIC
     Route: 048

REACTIONS (1)
  - Osteonecrosis of jaw [Recovered/Resolved]
